FAERS Safety Report 19008862 (Version 1)
Quarter: 2021Q1

REPORT INFORMATION
  Report Type: Other
  Country: DE (occurrence: DE)
  Receive Date: 20210315
  Receipt Date: 20210315
  Transmission Date: 20210420
  Serious: Yes (Hospitalization, Other)
  Sender: FDA-Public Use
  Company Number: DE-ASTELLAS-2021US008744

PATIENT
  Age: 3 Year
  Sex: Female
  Weight: 11 kg

DRUGS (5)
  1. VIGANTOL [COLECALCIFEROL] [Concomitant]
     Active Substance: CHOLECALCIFEROL
     Indication: PRODUCT SUBSTITUTION
     Dosage: 500 IU, DAILY DOSE
     Route: 048
     Dates: start: 201711
  2. NEXIUM MUPS [ESOMEPRAZOLE SODIUM] [Concomitant]
     Active Substance: ESOMEPRAZOLE SODIUM
     Indication: PROPHYLAXIS
     Dosage: 10 MG, DAILY DOSE
     Route: 048
  3. MODIGRAF [Suspect]
     Active Substance: TACROLIMUS
     Indication: IMMUNOSUPPRESSION
     Dosage: 1,3?0?1,2, UNKNOWN FREQ.
     Route: 048
     Dates: start: 20180724
  4. CERTICAN [Suspect]
     Active Substance: EVEROLIMUS
     Indication: IMMUNOSUPPRESSION
     Dosage: 1.5 MG, EVERY DAYS 2 SEPARATED DOSES
     Route: 048
     Dates: start: 20180724
  5. FERRUM HAUSMANN [FERROUS FUMARATE;SACCHARATED IRON OXIDE] [Concomitant]
     Indication: IRON DEFICIENCY ANAEMIA
     Dosage: 8?0?7 DROPS, UNKNOWN FREQ.
     Route: 048

REACTIONS (9)
  - General physical health deterioration [Recovering/Resolving]
  - Abdominal pain [Not Recovered/Not Resolved]
  - Pyrexia [Recovered/Resolved]
  - Hypotonia [Not Recovered/Not Resolved]
  - Seroconversion test positive [Not Recovered/Not Resolved]
  - Tonsillitis streptococcal [Not Recovered/Not Resolved]
  - Epstein-Barr virus infection reactivation [Not Recovered/Not Resolved]
  - Listless [Recovering/Resolving]
  - Rash macular [Not Recovered/Not Resolved]

NARRATIVE: CASE EVENT DATE: 20200608
